FAERS Safety Report 16427368 (Version 1)
Quarter: 2019Q2

REPORT INFORMATION
  Report Type: Spontaneous
  Country: US (occurrence: US)
  Receive Date: 20190613
  Receipt Date: 20190613
  Transmission Date: 20190711
  Serious: Yes (Hospitalization)
  Sender: FDA-Public Use
  Company Number: US-TEVA-2019-US-1047866

PATIENT
  Age: 48 Year
  Sex: Female

DRUGS (1)
  1. SORIATANE [Suspect]
     Active Substance: ACITRETIN
     Indication: PSORIASIS
     Route: 065
     Dates: start: 2016

REACTIONS (4)
  - Foot fracture [Unknown]
  - Product dose omission [Unknown]
  - Pneumonia [Unknown]
  - Fall [Unknown]
